FAERS Safety Report 7943270-5 (Version None)
Quarter: 2011Q4

REPORT INFORMATION
  Report Type: 
  Country: None (occurrence: None)
  Receive Date: 20111128
  Receipt Date: 20111120
  Transmission Date: 20120403
  Serious: Yes (Other)
  Sender: FDA-Public Use
  Company Number: PHHY2011MX102418

PATIENT
  Sex: Female

DRUGS (2)
  1. NOVOTIRAL [Concomitant]
     Dosage: 0.75 DF(UNK), DAILY
     Dates: start: 20091101
  2. EXFORGE [Suspect]
     Indication: HYPERTENSION
     Dosage: 1 DF (160/5 MG), DAILY
     Dates: start: 20091101

REACTIONS (1)
  - LUMBAR HERNIA [None]
